FAERS Safety Report 23290740 (Version 1)
Quarter: 2023Q4

REPORT INFORMATION
  Report Type: Other
  Country: FR (occurrence: FR)
  Receive Date: 20231213
  Receipt Date: 20231213
  Transmission Date: 20240109
  Serious: Yes (Death)
  Sender: FDA-Public Use
  Company Number: None

PATIENT

DRUGS (7)
  1. ARIPIPRAZOLE [Suspect]
     Active Substance: ARIPIPRAZOLE
     Indication: Product used for unknown indication
     Dosage: UNK
     Route: 065
     Dates: end: 20230912
  2. ALCOHOL [Suspect]
     Active Substance: ALCOHOL
     Indication: Product used for unknown indication
     Dosage: UNK
     Route: 065
     Dates: end: 20230912
  3. METHADONE HYDROCHLORIDE [Suspect]
     Active Substance: METHADONE HYDROCHLORIDE
     Indication: Product used for unknown indication
     Dosage: UNK
     Route: 065
     Dates: end: 20230912
  4. LOXAPINE SUCCINATE [Suspect]
     Active Substance: LOXAPINE SUCCINATE
     Indication: Product used for unknown indication
     Dosage: UNK
     Route: 065
     Dates: end: 20230912
  5. TRIHEXYPHENIDYL HYDROCHLORIDE [Suspect]
     Active Substance: TRIHEXYPHENIDYL HYDROCHLORIDE
     Indication: Product used for unknown indication
     Dosage: UNK
     Route: 065
     Dates: end: 20230912
  6. VORTIOXETINE HYDROBROMIDE [Suspect]
     Active Substance: VORTIOXETINE HYDROBROMIDE
     Indication: Product used for unknown indication
     Dosage: UNK
     Route: 065
     Dates: end: 20230912
  7. DIAZEPAM [Suspect]
     Active Substance: DIAZEPAM
     Indication: Product used for unknown indication
     Dosage: UNK
     Route: 065
     Dates: end: 20230912

REACTIONS (1)
  - Poisoning [Fatal]
